FAERS Safety Report 23540103 (Version 4)
Quarter: 2025Q2

REPORT INFORMATION
  Report Type: Report from Study
  Country: JP (occurrence: JP)
  Receive Date: 20240219
  Receipt Date: 20250423
  Transmission Date: 20250716
  Serious: Yes (Hospitalization, Other)
  Sender: RIGEL PHARMACEUTICALS
  Company Number: JP-RIGEL Pharmaceuticals, INC-2024FOS000152

PATIENT
  Age: 58 Year
  Sex: Female
  Weight: 42.7 kg

DRUGS (24)
  1. FOSTAMATINIB DISODIUM [Suspect]
     Active Substance: FOSTAMATINIB DISODIUM
     Indication: Immune thrombocytopenia
     Dosage: 100 MG, BID
     Route: 048
     Dates: start: 20240523
  2. FOSTAMATINIB DISODIUM [Suspect]
     Active Substance: FOSTAMATINIB DISODIUM
     Dosage: 150 MG, BID
     Route: 048
     Dates: start: 20240126, end: 20240522
  3. FOSTAMATINIB DISODIUM [Suspect]
     Active Substance: FOSTAMATINIB DISODIUM
     Dosage: 150 MG, BID
     Route: 048
     Dates: start: 20240110, end: 20240115
  4. FOSTAMATINIB DISODIUM [Suspect]
     Active Substance: FOSTAMATINIB DISODIUM
     Dosage: 100 MG, BID
     Route: 048
     Dates: start: 20231211, end: 20240109
  5. FOSTAMATINIB DISODIUM [Suspect]
     Active Substance: FOSTAMATINIB DISODIUM
     Dosage: 100 MG, QD
     Route: 048
     Dates: start: 20231206, end: 20231210
  6. PREDNISOLONE [Suspect]
     Active Substance: PREDNISOLONE
     Indication: Immune thrombocytopenia
     Dosage: 2 MG, QD
     Route: 048
     Dates: end: 20231208
  7. PREDNISOLONE [Suspect]
     Active Substance: PREDNISOLONE
     Dosage: 35 MG, QD
     Route: 048
     Dates: start: 20231209, end: 20231227
  8. PREDNISOLONE [Suspect]
     Active Substance: PREDNISOLONE
     Dosage: 40 MG, QD
     Route: 048
     Dates: start: 20231228, end: 20240115
  9. PREDNISOLONE [Suspect]
     Active Substance: PREDNISOLONE
     Dosage: 40 MG, QD
     Route: 042
     Dates: start: 20240116, end: 20240125
  10. PREDNISOLONE [Suspect]
     Active Substance: PREDNISOLONE
     Dosage: 35 MG, QD
     Route: 048
     Dates: start: 20240126, end: 20240306
  11. PREDNISOLONE [Suspect]
     Active Substance: PREDNISOLONE
     Dosage: 30 MG, QD
     Route: 048
     Dates: start: 20240307, end: 20240522
  12. PREDNISOLONE [Suspect]
     Active Substance: PREDNISOLONE
     Dosage: 25 MG, QD
     Route: 048
     Dates: start: 20240523, end: 20240605
  13. PREDNISOLONE [Suspect]
     Active Substance: PREDNISOLONE
     Dosage: 20 MG, QD
     Route: 048
     Dates: start: 20240606
  14. FAMOTIDINE [Concomitant]
     Active Substance: FAMOTIDINE
     Indication: Product used for unknown indication
     Route: 048
  15. ALENDRONATE [Concomitant]
     Active Substance: ALENDRONATE SODIUM
     Indication: Product used for unknown indication
     Route: 048
  16. AMITIZA [Concomitant]
     Active Substance: LUBIPROSTONE
     Indication: Product used for unknown indication
     Route: 048
  17. SULFAMETHOXAZOLE\TRIMETHOPRIM [Concomitant]
     Active Substance: SULFAMETHOXAZOLE\TRIMETHOPRIM
     Indication: Product used for unknown indication
     Route: 048
  18. MAGNESIUM OXIDE [Concomitant]
     Active Substance: MAGNESIUM OXIDE
     Indication: Product used for unknown indication
     Route: 048
  19. FLUCONAZOLE [Concomitant]
     Active Substance: FLUCONAZOLE
     Indication: Prophylaxis
     Route: 048
  20. KENKETSU VENOGLOBULIN-IH [Concomitant]
     Indication: Immune thrombocytopenia
     Dosage: 20 G, QD
     Route: 042
     Dates: start: 20240116, end: 20240120
  21. PLATELETS [Concomitant]
     Active Substance: HUMAN PLATELET, ALLOGENIC
     Indication: Immune thrombocytopenia
     Route: 042
     Dates: start: 20240116, end: 20240126
  22. PLATELETS [Concomitant]
     Active Substance: HUMAN PLATELET, ALLOGENIC
     Dosage: 10 IU, QD
     Route: 042
     Dates: start: 20240128, end: 20240128
  23. PLATELETS [Concomitant]
     Active Substance: HUMAN PLATELET, ALLOGENIC
     Dosage: 10 IU, QD
     Route: 042
     Dates: start: 20240130, end: 20240130
  24. PLATELETS [Concomitant]
     Active Substance: HUMAN PLATELET, ALLOGENIC
     Dosage: 10 IU, QD
     Route: 042
     Dates: start: 20240202, end: 20240202

REACTIONS (6)
  - Diverticular perforation [Recovered/Resolved]
  - Colonic abscess [Recovered/Resolved]
  - Peritonitis [Recovered/Resolved]
  - Hypertension [Recovered/Resolved]
  - Oral candidiasis [Recovered/Resolved]
  - Off label use [Unknown]

NARRATIVE: CASE EVENT DATE: 20231206
